FAERS Safety Report 5294719-0 (Version None)
Quarter: 2007Q2

REPORT INFORMATION
  Report Type: 
  Country: None (occurrence: None)
  Receive Date: 20070406
  Receipt Date: 20070328
  Transmission Date: 20071010
  Serious: Yes (Hospitalization)
  Sender: FDA-Public Use
  Company Number: 07H-163-0312351-00

PATIENT
  Age: 19 Year
  Sex: Female

DRUGS (5)
  1. DROPERIDOL [Suspect]
     Indication: NAUSEA
     Dosage: UNKNOWN, GIVEN OVER 4 MIN, INTRAVENOUS
     Route: 042
     Dates: start: 20070318
  2. DROPERIDOL [Suspect]
     Indication: VOMITING
     Dosage: UNKNOWN, GIVEN OVER 4 MIN, INTRAVENOUS
     Route: 042
     Dates: start: 20070318
  3. MORPHINE [Concomitant]
  4. REGLAN [Concomitant]
  5. NORCO [Concomitant]

REACTIONS (7)
  - CONVULSION [None]
  - HYPERHIDROSIS [None]
  - MUSCLE RIGIDITY [None]
  - NAUSEA [None]
  - PANIC ATTACK [None]
  - TREMOR [None]
  - VOMITING [None]
